FAERS Safety Report 9070354 (Version 1)
Quarter: 2013Q1

REPORT INFORMATION
  Report Type: Spontaneous
  Country: GR (occurrence: GR)
  Receive Date: 20130215
  Receipt Date: 20130215
  Transmission Date: 20140127
  Serious: Yes (Death, Other)
  Sender: FDA-Public Use
  Company Number: GR-GENZYME-THYM-1003628

PATIENT
  Sex: Female

DRUGS (4)
  1. THYMOGLOBULINE [Suspect]
     Indication: BONE MARROW CONDITIONING REGIMEN
     Dosage: 2.5 MG/KG, QD X 3 DAYS
     Route: 042
  2. CYCLOPHOSPHAMIDE [Concomitant]
     Indication: HAEMATOPOIETIC STEM CELL MOBILISATION
     Dosage: 40 MG/KG, QDX4 DAYS, 4G/ M2
     Route: 065
  3. CYCLOPHOSPHAMIDE [Concomitant]
     Indication: BONE MARROW CONDITIONING REGIMEN
  4. GRANULOCYTE COLONY STIMULATING FACTOR [Concomitant]
     Indication: HAEMATOPOIETIC STEM CELL MOBILISATION
     Dosage: UNK
     Route: 065

REACTIONS (10)
  - Multi-organ failure [Fatal]
  - Pneumothorax [Unknown]
  - Febrile neutropenia [Unknown]
  - Infection [Fatal]
  - Bacteraemia [Fatal]
  - Viral haemorrhagic cystitis [Unknown]
  - Cytomegalovirus infection [Unknown]
  - Epstein-Barr virus infection [Unknown]
  - Lower respiratory tract infection [Unknown]
  - Herpes zoster [Unknown]
